FAERS Safety Report 10495916 (Version 3)
Quarter: 2015Q2

REPORT INFORMATION
  Report Type: Spontaneous
  Country: US (occurrence: US)
  Receive Date: 20141003
  Receipt Date: 20150415
  Transmission Date: 20150821
  Serious: No
  Sender: FDA-Public Use
  Company Number: US-PFIZER INC-2014270365

PATIENT
  Age: 71 Year
  Sex: Female

DRUGS (5)
  1. METFORMIN HYDROCHLORIDE. [Concomitant]
     Active Substance: METFORMIN HYDROCHLORIDE
     Dosage: UNK
  2. GLIMEPIRIDE. [Concomitant]
     Active Substance: GLIMEPIRIDE
     Dosage: UNK
  3. BENICAR HCT [Concomitant]
     Active Substance: HYDROCHLOROTHIAZIDE\OLMESARTAN MEDOXOMIL
     Dosage: UNK
  4. BOSULIF [Suspect]
     Active Substance: BOSUTINIB MONOHYDRATE
     Dosage: 200 MG, 1X/DAY
     Route: 048
     Dates: start: 20140925
  5. HYDROXYZINE [Concomitant]
     Active Substance: HYDROXYZINE\HYDROXYZINE HYDROCHLORIDE
     Dosage: UNK

REACTIONS (3)
  - Back pain [Not Recovered/Not Resolved]
  - Nausea [Not Recovered/Not Resolved]
  - Rash macular [Not Recovered/Not Resolved]

NARRATIVE: CASE EVENT DATE: 2014
